FAERS Safety Report 24152667 (Version 2)
Quarter: 2024Q3

REPORT INFORMATION
  Report Type: Spontaneous
  Country: US (occurrence: US)
  Receive Date: 20240730
  Receipt Date: 20240802
  Transmission Date: 20241016
  Serious: No
  Sender: SANOFI AVENTIS
  Company Number: US-SANOFI-02145680

PATIENT
  Age: 68 Year
  Sex: Female

DRUGS (2)
  1. TOUJEO [Suspect]
     Active Substance: INSULIN GLARGINE
     Indication: Diabetes mellitus
     Dosage: 10 IU, QD
     Route: 065
     Dates: start: 202406, end: 202406
  2. TOUJEO [Suspect]
     Active Substance: INSULIN GLARGINE
     Dosage: 18 IU, QD
     Route: 065
     Dates: start: 2024

REACTIONS (4)
  - Blood glucose decreased [Unknown]
  - Tremor [Unknown]
  - Product dispensing error [Unknown]
  - Device mechanical issue [Unknown]

NARRATIVE: CASE EVENT DATE: 20240101
